FAERS Safety Report 16572963 (Version 2)
Quarter: 2020Q2

REPORT INFORMATION
  Report Type: Spontaneous
  Country: US (occurrence: US)
  Receive Date: 20190715
  Receipt Date: 20200615
  Transmission Date: 20200713
  Serious: No
  Sender: FDA-Public Use
  Company Number: US-SA-2019SA190422

PATIENT

DRUGS (9)
  1. HPRPLUS CREAM [Concomitant]
     Dosage: UNK
  2. GENTAMICIN SULFATE. [Concomitant]
     Active Substance: GENTAMICIN SULFATE
     Dosage: UNK
  3. AVEENO [Concomitant]
     Active Substance: DIMETHICONE\HOMOSALATE\OCTINOXATE\OCTISALATE\TITANIUM DIOXIDE
     Dosage: UNK
  4. ALLEGRA ALLERGY [Concomitant]
     Active Substance: FEXOFENADINE HYDROCHLORIDE
  5. DUPIXENT [Suspect]
     Active Substance: DUPILUMAB
     Indication: DERMATITIS ATOPIC
     Dosage: 300 MG, QOW
     Route: 058
     Dates: start: 20180619
  6. CLOBETASOL [Concomitant]
     Active Substance: CLOBETASOL
     Dosage: UNK
  7. VITAMINS NOS [Concomitant]
     Active Substance: VITAMINS
  8. EUCRISA [Concomitant]
     Active Substance: CRISABOROLE
  9. TACROLIMUS. [Concomitant]
     Active Substance: TACROLIMUS
     Dosage: UNK

REACTIONS (6)
  - Lip erythema [Unknown]
  - Abscess [Unknown]
  - Lip swelling [Unknown]
  - Stress [Unknown]
  - Lip ulceration [Unknown]
  - Dry eye [Recovering/Resolving]

NARRATIVE: CASE EVENT DATE: 2020
